FAERS Safety Report 6843697-9 (Version None)
Quarter: 2010Q3

REPORT INFORMATION
  Report Type: 
  Country: None (occurrence: None)
  Receive Date: 20100715
  Receipt Date: 20100706
  Transmission Date: 20110219
  Serious: Yes (Other)
  Sender: FDA-Public Use
  Company Number: AU-JNJFOC-20100702397

PATIENT
  Sex: Female

DRUGS (5)
  1. TOPAMAX [Suspect]
     Indication: TRIGEMINAL NEURALGIA
     Dosage: 3 AT NIGHT
     Route: 048
  2. TOPAMAX [Suspect]
     Dosage: 4 AT NIGHT
     Route: 048
  3. TOPAMAX [Suspect]
     Dosage: 1 AT NIGHT
     Route: 048
  4. TOPAMAX [Suspect]
     Dosage: 2 AT NIGHT
     Route: 048
  5. TOPAMAX [Suspect]
     Dosage: 1 AT NIGHT
     Route: 048

REACTIONS (10)
  - AGEUSIA [None]
  - ALOPECIA [None]
  - CRYING [None]
  - ENURESIS [None]
  - FEELING ABNORMAL [None]
  - HYPOAESTHESIA [None]
  - HYPOKINESIA [None]
  - INSOMNIA [None]
  - SUICIDAL IDEATION [None]
  - VOMITING [None]
